FAERS Safety Report 8162681-9 (Version None)
Quarter: 2012Q1

REPORT INFORMATION
  Report Type: 
  Country: None (occurrence: None)
  Receive Date: 20120224
  Receipt Date: 20120210
  Transmission Date: 20120608
  Serious: Yes (Hospitalization)
  Sender: FDA-Public Use
  Company Number: US-RANBAXY-2010US-33529

PATIENT
  Age: 37 Year
  Sex: Female

DRUGS (2)
  1. ADRENALIN IN OIL INJ [Suspect]
     Dosage: 1 MG
     Route: 042
  2. ADRENALIN IN OIL INJ [Suspect]
     Indication: ANAPHYLACTIC REACTION
     Dosage: 2 DOSES OF  0.5 MG
     Route: 042

REACTIONS (3)
  - ACCIDENTAL OVERDOSE [None]
  - MEDICATION ERROR [None]
  - MYOCARDIAL ISCHAEMIA [None]
